FAERS Safety Report 23308402 (Version 1)
Quarter: 2023Q4

REPORT INFORMATION
  Report Type: Spontaneous
  Country: US (occurrence: US)
  Receive Date: 20231218
  Receipt Date: 20231218
  Transmission Date: 20240110
  Serious: No
  Sender: FDA-Public Use
  Company Number: US-SA-SAC20231212000869

PATIENT
  Age: 30 Year
  Sex: Female

DRUGS (2)
  1. DUPIXENT [Suspect]
     Active Substance: DUPILUMAB
     Indication: Eczema
     Dosage: 600 MG, 1X (2 PENS UNDER THE SKIN ON DAY 1)
     Route: 058
     Dates: start: 20231123, end: 20231123
  2. DUPIXENT [Suspect]
     Active Substance: DUPILUMAB
     Dosage: 300 MG, QOW
     Route: 058
     Dates: start: 20231207

REACTIONS (3)
  - Eczema [Unknown]
  - Blister [Unknown]
  - Pain of skin [Unknown]

NARRATIVE: CASE EVENT DATE: 20231101
